FAERS Safety Report 6634513-9 (Version None)
Quarter: 2010Q1

REPORT INFORMATION
  Report Type: 
  Country: None (occurrence: None)
  Receive Date: 20100315
  Receipt Date: 20100304
  Transmission Date: 20100710
  Serious: Yes (Death)
  Sender: FDA-Public Use
  Company Number: AU-BAXTER-2010BH006338

PATIENT
  Age: 74 Year
  Sex: Female

DRUGS (1)
  1. SUPRANE [Suspect]
     Indication: GENERAL ANAESTHESIA
     Route: 055
     Dates: start: 20100201, end: 20100201

REACTIONS (3)
  - HEPATIC FAILURE [None]
  - HEPATITIS [None]
  - HEPATOTOXICITY [None]
